FAERS Safety Report 13190338 (Version 2)
Quarter: 2017Q1

REPORT INFORMATION
  Report Type: Report from Study
  Country: IL (occurrence: IL)
  Receive Date: 20170206
  Receipt Date: 20170306
  Transmission Date: 20170428
  Serious: Yes (Death)
  Sender: FDA-Public Use
  Company Number: IL-PFIZER INC-2017052802

PATIENT
  Age: 46 Year

DRUGS (1)
  1. PALBOCICLIB [Suspect]
     Active Substance: PALBOCICLIB
     Indication: GLIOBLASTOMA
     Dosage: UNK

REACTIONS (1)
  - Neoplasm progression [Fatal]
